FAERS Safety Report 14707926 (Version 9)
Quarter: 2020Q3

REPORT INFORMATION
  Report Type: Spontaneous
  Country: US (occurrence: US)
  Receive Date: 20180403
  Receipt Date: 20200708
  Transmission Date: 20201102
  Serious: No
  Sender: FDA-Public Use
  Company Number: US-PFIZER INC-2018133832

PATIENT
  Age: 47 Year
  Sex: Female
  Weight: 112.04 kg

DRUGS (2)
  1. NORPACE [Suspect]
     Active Substance: DISOPYRAMIDE PHOSPHATE
     Dosage: UNK
  2. NORPACE CR [Suspect]
     Active Substance: DISOPYRAMIDE PHOSPHATE
     Indication: HYPERTROPHIC CARDIOMYOPATHY
     Dosage: 300 MG, 2X/DAY
     Route: 048

REACTIONS (5)
  - Vision blurred [Unknown]
  - Stress [Unknown]
  - Illness [Unknown]
  - Off label use [Unknown]
  - Drug ineffective for unapproved indication [Unknown]
